FAERS Safety Report 8036200-1 (Version None)
Quarter: 2012Q1

REPORT INFORMATION
  Report Type: 
  Country: None (occurrence: None)
  Receive Date: 20120111
  Receipt Date: 20120103
  Transmission Date: 20120608
  Serious: Yes (Hospitalization, Other)
  Sender: FDA-Public Use
  Company Number: CN-ELI_LILLY_AND_COMPANY-CN201201001682

PATIENT
  Age: 67 Year
  Sex: Male

DRUGS (3)
  1. FOLIC ACID [Concomitant]
  2. VITAMIN B-12 [Concomitant]
  3. PEMETREXED [Suspect]
     Indication: LUNG ADENOCARCINOMA
     Dosage: 500 MG/M2, ON DAY ONE

REACTIONS (2)
  - RESPIRATORY DISTRESS [None]
  - HAEMOLYTIC ANAEMIA [None]
